FAERS Safety Report 8080108-2 (Version None)
Quarter: 2012Q1

REPORT INFORMATION
  Report Type: 
  Country: None (occurrence: None)
  Receive Date: 20120129
  Receipt Date: 20111027
  Transmission Date: 20120608
  Serious: No
  Sender: FDA-Public Use
  Company Number: US-ABBOTT-11P-163-0869451-00

PATIENT
  Age: 71 Year
  Sex: Male

DRUGS (5)
  1. TRAMADOL HCL [Concomitant]
     Indication: ABDOMINAL PAIN
  2. HUMIRA [Suspect]
     Indication: CROHN'S DISEASE
     Dates: start: 20111013, end: 20111013
  3. HUMIRA [Suspect]
     Dates: start: 20111027
  4. ASPIRIN [Concomitant]
     Indication: PRODUCT USED FOR UNKNOWN INDICATION
  5. OTC VITAMINS [Concomitant]
     Indication: PRODUCT USED FOR UNKNOWN INDICATION
     Dosage: DAILY

REACTIONS (4)
  - SWOLLEN TONGUE [None]
  - CONDITION AGGRAVATED [None]
  - HYPERTROPHY OF TONGUE PAPILLAE [None]
  - GLOSSODYNIA [None]
